FAERS Safety Report 8610815-1 (Version None)
Quarter: 2012Q3

REPORT INFORMATION
  Report Type: 
  Country: None (occurrence: None)
  Receive Date: 20120822
  Receipt Date: 20120810
  Transmission Date: 20120928
  Serious: Yes (Other)
  Sender: FDA-Public Use
  Company Number: JP-UCBSA-063778

PATIENT

DRUGS (1)
  1. KEPPRA [Suspect]
     Route: 048

REACTIONS (3)
  - PNEUMONIA ASPIRATION [None]
  - SOMNOLENCE [None]
  - MUSCULAR WEAKNESS [None]
